FAERS Safety Report 12881915 (Version 3)
Quarter: 2016Q4

REPORT INFORMATION
  Report Type: Spontaneous
  Country: JP (occurrence: JP)
  Receive Date: 20161025
  Receipt Date: 20161230
  Transmission Date: 20170207
  Serious: Yes (Life-Threatening, Hospitalization)
  Sender: FDA-Public Use
  Company Number: JP-JNJFOC-20161021100

PATIENT
  Age: 50 Year
  Sex: Female
  Weight: 73 kg

DRUGS (2)
  1. PREDNISOLONE. [Concomitant]
     Active Substance: PREDNISOLONE
     Indication: EAR DISORDER
     Route: 065
     Dates: start: 20161008, end: 20161011
  2. CANAGLU [Suspect]
     Active Substance: CANAGLIFLOZIN
     Indication: DIABETES MELLITUS
     Route: 048
     Dates: start: 20161012, end: 20161018

REACTIONS (1)
  - Diabetic ketoacidosis [Recovering/Resolving]

NARRATIVE: CASE EVENT DATE: 20161018
